FAERS Safety Report 8936643 (Version 1)
Quarter: 2012Q4

REPORT INFORMATION
  Report Type: 
  Country: JP (occurrence: JP)
  Receive Date: 20121130
  Receipt Date: 20121130
  Transmission Date: 20130627
  Serious: Yes (Hospitalization)
  Sender: FDA-Public Use
  Company Number: JP-B.I. PHARMACEUTICALS,INC./RIDGEFIELD-2012-BI-01297NB

PATIENT
  Age: 65 Year
  Sex: Male
  Weight: 70 kg

DRUGS (5)
  1. MICARDIS [Suspect]
     Indication: HYPERTENSION
     Dosage: 40 mg
     Route: 048
  2. FAMOSTAGINE [Suspect]
     Indication: GASTRITIS PROPHYLAXIS
     Dosage: 20 mg
     Route: 048
  3. CARDENALIN [Suspect]
     Indication: HYPERTENSION
     Dosage: 4 mg
     Route: 048
  4. ADALAT-CR [Suspect]
     Indication: HYPERTENSION
     Dosage: 40 mg
     Route: 048
  5. GLACTIV [Suspect]
     Indication: DIABETES MELLITUS
     Dosage: 50 mg
     Route: 048
     Dates: start: 20110308

REACTIONS (1)
  - Colon cancer [Not Recovered/Not Resolved]
